FAERS Safety Report 15245011 (Version 1)
Quarter: 2018Q3

REPORT INFORMATION
  Report Type: Spontaneous
  Country: US (occurrence: US)
  Receive Date: 20180713
  Receipt Date: 20180713
  Transmission Date: 20181010
  Serious: Yes (Other)
  Sender: FDA-Public Use
  Company Number: None

PATIENT
  Age: 75 Year
  Sex: Male
  Weight: 74.84 kg

DRUGS (10)
  1. ATORVASTATIN CALCIUM. [Suspect]
     Active Substance: ATORVASTATIN CALCIUM
     Indication: BLOOD CHOLESTEROL INCREASED
     Route: 048
     Dates: start: 20180627, end: 20180710
  2. LISINOPRIL. [Concomitant]
     Active Substance: LISINOPRIL
  3. EYE VITAMIN (AREDS 2) [Concomitant]
  4. ELIQUIS [Concomitant]
     Active Substance: APIXABAN
  5. MEN^S MULTIVITAMIN [Concomitant]
  6. METOPROLOL SUCC [Concomitant]
     Active Substance: METOPROLOL SUCCINATE
  7. ASPIRIN. [Concomitant]
     Active Substance: ASPIRIN
  8. FISH OIL [Concomitant]
     Active Substance: FISH OIL
  9. LEVOXYL [Concomitant]
     Active Substance: LEVOTHYROXINE SODIUM
  10. LIPITOR [Concomitant]
     Active Substance: ATORVASTATIN CALCIUM

REACTIONS (4)
  - Palpitations [None]
  - Product substitution issue [None]
  - Drug effect decreased [None]
  - Insomnia [None]

NARRATIVE: CASE EVENT DATE: 20180707
